FAERS Safety Report 14418254 (Version 1)
Quarter: 2018Q1

REPORT INFORMATION
  Report Type: Spontaneous
  Country: US (occurrence: US)
  Receive Date: 20180122
  Receipt Date: 20180122
  Transmission Date: 20180509
  Serious: No
  Sender: FDA-Public Use
  Company Number: US-INTERCEPT-PMOCA2017001192

PATIENT

DRUGS (12)
  1. GABAPENTIN. [Concomitant]
     Active Substance: GABAPENTIN
  2. VALCYTE [Concomitant]
     Active Substance: VALGANCICLOVIR HYDROCHLORIDE
  3. VALSTAR [Concomitant]
     Active Substance: VALRUBICIN
  4. OCALIVA [Suspect]
     Active Substance: OBETICHOLIC ACID
     Indication: PRIMARY BILIARY CHOLANGITIS
     Dosage: 5 MG, QD
     Route: 048
     Dates: start: 20170915
  5. FISH OIL [Concomitant]
     Active Substance: FISH OIL
  6. CALCIUM [Concomitant]
     Active Substance: CALCIUM
  7. DHEA [Concomitant]
     Active Substance: PRASTERONE
  8. MELOXICAM. [Concomitant]
     Active Substance: MELOXICAM
  9. URSODIOL. [Concomitant]
     Active Substance: URSODIOL
  10. ASPIRIN. [Concomitant]
     Active Substance: ASPIRIN
  11. CHERRY BEST [Concomitant]
  12. VITAMIN D [Concomitant]
     Active Substance: CHOLECALCIFEROL

REACTIONS (7)
  - Fatigue [Unknown]
  - Hypoaesthesia [Unknown]
  - Arthralgia [Unknown]
  - Paraesthesia [Unknown]
  - Joint swelling [Unknown]
  - Arthritis [Unknown]
  - Pruritus [Unknown]

NARRATIVE: CASE EVENT DATE: 20171011
